FAERS Safety Report 18338375 (Version 1)
Quarter: 2020Q3

REPORT INFORMATION
  Report Type: Spontaneous
  Country: US (occurrence: US)
  Receive Date: 20200930
  Receipt Date: 20200930
  Transmission Date: 20201103
  Serious: No
  Sender: FDA-Public Use
  Company Number: None

PATIENT
  Age: 38 Year
  Sex: Male

DRUGS (1)
  1. LISDEXAMFETAMINE (LISDEXAMFETAMINE DIMESYLATE 40MG CAP, ORAL) [Suspect]
     Active Substance: LISDEXAMFETAMINE DIMESYLATE
     Indication: ATTENTION DEFICIT HYPERACTIVITY DISORDER
     Dosage: ?          OTHER FREQUENCY:AM;?
     Route: 048
     Dates: start: 20181217, end: 20200706

REACTIONS (1)
  - Delusion [None]

NARRATIVE: CASE EVENT DATE: 20200706
